FAERS Safety Report 10097567 (Version 3)
Quarter: 2014Q2

REPORT INFORMATION
  Report Type: Spontaneous
  Country: SE (occurrence: SE)
  Receive Date: 20140423
  Receipt Date: 20140520
  Transmission Date: 20141212
  Serious: Yes (Other)
  Sender: FDA-Public Use
  Company Number: SE-AMGEN INC.-SWESP2013081448

PATIENT
  Age: 39 Year
  Sex: Male

DRUGS (4)
  1. ETANERCEPT [Suspect]
     Indication: RHEUMATOID ARTHRITIS
     Dosage: 50 MG, WEEKLY
     Route: 065
     Dates: start: 20131030, end: 20140327
  2. ETANERCEPT [Suspect]
     Dosage: 50 MG, UNK
     Route: 065
     Dates: start: 20140508
  3. CITODON                            /00116401/ [Concomitant]
     Dosage: UNK
  4. NAPROXEN [Concomitant]
     Dosage: UNK

REACTIONS (3)
  - Arthropathy [Recovered/Resolved]
  - Arthralgia [Unknown]
  - Gait disturbance [Unknown]
